FAERS Safety Report 11425993 (Version 1)
Quarter: 2015Q3

REPORT INFORMATION
  Report Type: Spontaneous
  Country: US (occurrence: US)
  Receive Date: 20150821
  Receipt Date: 20150821
  Transmission Date: 20151125
  Serious: No
  Sender: FDA-Public Use
  Company Number: US-ELI_LILLY_AND_COMPANY-US201304005946

PATIENT
  Sex: Female

DRUGS (9)
  1. CLARITIN [Concomitant]
     Active Substance: LORATADINE
     Dosage: 10 MG, UNKNOWN
  2. LOVASTATIN. [Concomitant]
     Active Substance: LOVASTATIN
     Dosage: 10 MG, UNKNOWN
  3. POTASSIUM [Concomitant]
     Active Substance: POTASSIUM
     Dosage: 50 MG, UNKNOWN
  4. CIALIS [Suspect]
     Active Substance: TADALAFIL
     Indication: RAYNAUD^S PHENOMENON
     Dosage: 5 MG, UNKNOWN
     Dates: start: 201301
  5. NEXIUM [Concomitant]
     Active Substance: ESOMEPRAZOLE MAGNESIUM
     Dosage: 40 MG, UNKNOWN
  6. PROCARDIA [Concomitant]
     Active Substance: NIFEDIPINE
     Dosage: 10 MG, UNKNOWN
  7. GABAPENTIN. [Concomitant]
     Active Substance: GABAPENTIN
     Dosage: 30 MG, UNKNOWN
  8. TRAZODONE [Concomitant]
     Active Substance: TRAZODONE HYDROCHLORIDE
     Dosage: 50 MG, UNKNOWN
  9. HYDROCHLOROTHIAZIDE. [Concomitant]
     Active Substance: HYDROCHLOROTHIAZIDE
     Dosage: 25 MG, UNKNOWN

REACTIONS (4)
  - Peripheral coldness [Unknown]
  - Off label use [Unknown]
  - Dizziness [Unknown]
  - Muscle spasms [Unknown]
